FAERS Safety Report 7312269-4 (Version None)
Quarter: 2011Q1

REPORT INFORMATION
  Report Type: 
  Country: None (occurrence: None)
  Receive Date: 20110224
  Receipt Date: 20110216
  Transmission Date: 20110831
  Serious: Yes (Other)
  Sender: FDA-Public Use
  Company Number: A0915130A

PATIENT
  Sex: Female

DRUGS (2)
  1. XELODA [Suspect]
     Dosage: 2000MGM2 SEE DOSAGE TEXT
     Route: 048
  2. TYKERB [Suspect]
     Indication: BREAST CANCER
     Dosage: 1250MG PER DAY
     Route: 048

REACTIONS (6)
  - ELECTROCARDIOGRAM CHANGE [None]
  - EJECTION FRACTION DECREASED [None]
  - BRAIN NATRIURETIC PEPTIDE INCREASED [None]
  - ELECTROCARDIOGRAM QT PROLONGED [None]
  - BLOOD CREATINE PHOSPHOKINASE INCREASED [None]
  - CARDIAC DISORDER [None]
